FAERS Safety Report 22296878 (Version 3)
Quarter: 2024Q1

REPORT INFORMATION
  Report Type: Report from Study
  Country: US (occurrence: US)
  Receive Date: 20230509
  Receipt Date: 20240109
  Transmission Date: 20240410
  Serious: No
  Sender: FDA-Public Use
  Company Number: US-ACADIA PHARMACEUTICALS INC.-ACA-2023-PIM-001472

PATIENT
  Age: 87 Year
  Sex: Female

DRUGS (3)
  1. NUPLAZID [Suspect]
     Active Substance: PIMAVANSERIN TARTRATE
     Indication: Parkinson^s disease psychosis
     Dosage: 34 MILLIGRAM, QD
     Route: 048
     Dates: start: 20230323
  2. NUPLAZID [Suspect]
     Active Substance: PIMAVANSERIN TARTRATE
     Dosage: ACCIDENTALLY TOOK TWO DOSES OF THE MEDICATION (ONE TAKEN AT BEDTIME, ANOTHER FIRST THING IN THE MORN
     Route: 048
  3. NUPLAZID [Suspect]
     Active Substance: PIMAVANSERIN TARTRATE
     Dosage: 34 MILLIGRAM, QD
     Route: 048

REACTIONS (15)
  - Potentiating drug interaction [Unknown]
  - Abnormal behaviour [Unknown]
  - Product dose omission issue [Unknown]
  - Adverse drug reaction [Unknown]
  - Thinking abnormal [Unknown]
  - Depression [Unknown]
  - Ill-defined disorder [Unknown]
  - Euphoric mood [Unknown]
  - Irritability [Unknown]
  - Insomnia [Unknown]
  - Fatigue [Unknown]
  - Accidental overdose [Unknown]
  - Dyspnoea [Unknown]
  - Confusional state [Unknown]
  - Dyspnoea [Unknown]

NARRATIVE: CASE EVENT DATE: 20230526
